FAERS Safety Report 13340631 (Version 3)
Quarter: 2017Q2

REPORT INFORMATION
  Report Type: Spontaneous
  Country: US (occurrence: US)
  Receive Date: 20170316
  Receipt Date: 20170526
  Transmission Date: 20170830
  Serious: Yes (Hospitalization, Other)
  Sender: FDA-Public Use
  Company Number: US-PROCTER+GAMBLE-CIO14039822

PATIENT
  Age: 59 Year
  Sex: Female

DRUGS (7)
  1. DEXTROMETHORPHAN [Suspect]
     Active Substance: DEXTROMETHORPHAN
     Dosage: VERY LIMITED USE
     Route: 048
  2. CHLORPHENAMINE MALEATE [Suspect]
     Active Substance: CHLORPHENIRAMINE MALEATE
     Dosage: UNK
     Route: 048
  3. PSEUDOEPHEDRINE HYDROCHLORIDE. [Suspect]
     Active Substance: PSEUDOEPHEDRINE HYDROCHLORIDE
     Indication: SINUS HEADACHE
  4. PHENYLEPHRINE HYDROCHLORIDE. [Suspect]
     Active Substance: PHENYLEPHRINE HYDROCHLORIDE
     Indication: SINUSITIS
     Dosage: DAILY FOR THE 4 DAYS LEADING UP TO HOSPITIZATION
     Route: 048
  5. PSEUDOEPHEDRINE HYDROCHLORIDE. [Suspect]
     Active Substance: PSEUDOEPHEDRINE HYDROCHLORIDE
     Indication: SINUSITIS
     Dosage: UNK
     Route: 048
  6. PHENYLEPHRINE HYDROCHLORIDE. [Suspect]
     Active Substance: PHENYLEPHRINE HYDROCHLORIDE
     Indication: SINUS HEADACHE
  7. PARACETAMOL [Suspect]
     Active Substance: ACETAMINOPHEN
     Dosage: OVER 600MG
     Route: 048

REACTIONS (14)
  - Urinary incontinence [Recovering/Resolving]
  - Thunderclap headache [Recovering/Resolving]
  - Anal incontinence [Recovering/Resolving]
  - Blood potassium decreased [Recovering/Resolving]
  - Cerebral haemorrhage [Recovered/Resolved with Sequelae]
  - Reversible cerebral vasoconstriction syndrome [Recovered/Resolved with Sequelae]
  - Angiogram cerebral abnormal [Recovered/Resolved]
  - Cerebrovascular accident [Recovered/Resolved with Sequelae]
  - Aphasia [Recovering/Resolving]
  - Ataxia [Recovering/Resolving]
  - Headache [Recovering/Resolving]
  - Hemiparesis [Recovering/Resolving]
  - Gaze palsy [Recovering/Resolving]
  - Blood pressure systolic increased [Recovering/Resolving]
